FAERS Safety Report 25485036 (Version 1)
Quarter: 2025Q2

REPORT INFORMATION
  Report Type: Spontaneous
  Country: ES (occurrence: ES)
  Receive Date: 20250626
  Receipt Date: 20250626
  Transmission Date: 20250717
  Serious: Yes (Other)
  Sender: RANBAXY
  Company Number: ES-SUN PHARMACEUTICAL INDUSTRIES INC-2025R1-513712

PATIENT
  Age: 62 Year
  Sex: Male

DRUGS (1)
  1. DOXORUBICIN [Suspect]
     Active Substance: DOXORUBICIN
     Indication: Therapeutic embolisation
     Route: 065
     Dates: start: 201203

REACTIONS (2)
  - Metastases to liver [Unknown]
  - Condition aggravated [Unknown]
